FAERS Safety Report 6141236-1 (Version None)
Quarter: 2009Q1

REPORT INFORMATION
  Report Type: 
  Country: None (occurrence: None)
  Receive Date: 20090330
  Receipt Date: 20090330
  Transmission Date: 20090719
  Serious: Yes (Life-Threatening, Other)
  Sender: FDA-Public Use
  Company Number: None

PATIENT
  Age: 49 Year
  Sex: Female
  Weight: 90.7194 kg

DRUGS (2)
  1. SYNTHROID [Suspect]
     Indication: HYPOTHYROIDISM
     Dosage: ONCE DAILY PO
     Route: 048
     Dates: start: 20020102, end: 20090308
  2. LEVOTHYROXINE SODIUM [Concomitant]

REACTIONS (3)
  - PRODUCT QUALITY ISSUE [None]
  - PRODUCT TAMPERING [None]
  - UNDERDOSE [None]
